FAERS Safety Report 8509552-3 (Version None)
Quarter: 2012Q3

REPORT INFORMATION
  Report Type: 
  Country: None (occurrence: None)
  Receive Date: 20120713
  Receipt Date: 20120711
  Transmission Date: 20120928
  Serious: Yes (Death, Other)
  Sender: FDA-Public Use
  Company Number: PHEH2012US013769

PATIENT
  Sex: Female

DRUGS (5)
  1. RECLAST [Suspect]
     Dosage: UNK UKN, UNK
     Route: 042
     Dates: start: 20110801
  2. SPIRONOLACTONE [Concomitant]
     Dosage: 12.5 UKN, UNK
     Route: 048
  3. TORSEMIDE [Concomitant]
     Dosage: 20 MG, UNK
     Route: 048
  4. POTASSIUM CHLORIDE [Concomitant]
     Dosage: 20 MG, UNK
     Route: 048
  5. PLETAL [Concomitant]
     Dosage: UNK UKN, UNK

REACTIONS (4)
  - MITRAL VALVE INCOMPETENCE [None]
  - CARDIAC FAILURE CONGESTIVE [None]
  - MYOCARDIAL ISCHAEMIA [None]
  - MITRAL VALVE DISEASE [None]
